FAERS Safety Report 23286434 (Version 2)
Quarter: 2023Q4

REPORT INFORMATION
  Report Type: Spontaneous
  Country: FR (occurrence: FR)
  Receive Date: 20231212
  Receipt Date: 20231213
  Transmission Date: 20240110
  Serious: Yes (Hospitalization)
  Sender: FDA-Public Use
  Company Number: FR-AMERICAN REGENT INC-2023002818

PATIENT
  Age: 33 Year
  Sex: Female

DRUGS (1)
  1. FERINJECT [Suspect]
     Active Substance: FERRIC CARBOXYMALTOSE
     Indication: Iron deficiency
     Dosage: 1 GRAM, SINGLE (1 GM, 1 IN 1 TOTAL)
     Route: 042
     Dates: start: 20231113, end: 20231113

REACTIONS (3)
  - Tongue oedema [Recovered/Resolved]
  - Urticaria [Recovered/Resolved]
  - Hypotension [Recovered/Resolved]

NARRATIVE: CASE EVENT DATE: 20231113
